FAERS Safety Report 6250414-2 (Version None)
Quarter: 2009Q2

REPORT INFORMATION
  Report Type: 
  Country: None (occurrence: None)
  Receive Date: 20090630
  Receipt Date: 20090624
  Transmission Date: 20091009
  Serious: Yes (Other)
  Sender: FDA-Public Use
  Company Number: US-ASTRAZENECA-2007UW06360

PATIENT
  Age: 31 Year
  Sex: Female
  Weight: 117.9 kg

DRUGS (9)
  1. SEROQUEL [Suspect]
     Indication: BIPOLAR DISORDER
     Route: 048
     Dates: start: 19970101
  2. SEROQUEL [Suspect]
     Indication: DEPRESSION
     Route: 048
     Dates: start: 19970101
  3. SEROQUEL [Suspect]
     Indication: POST-TRAUMATIC STRESS DISORDER
     Route: 048
     Dates: start: 19970101
  4. SEROQUEL [Suspect]
     Dosage: 20 MG, 200 MG
     Route: 048
     Dates: start: 20010901
  5. SEROQUEL [Suspect]
     Dosage: 20 MG, 200 MG
     Route: 048
     Dates: start: 20010901
  6. SEROQUEL [Suspect]
     Dosage: 20 MG, 200 MG
     Route: 048
     Dates: start: 20010901
  7. RISPERDAL [Concomitant]
     Dates: start: 20010101
  8. LITHIUM [Concomitant]
  9. DEPAKOTE [Concomitant]

REACTIONS (5)
  - BLOOD CHOLESTEROL INCREASED [None]
  - CELLULITIS [None]
  - HYSTERECTOMY [None]
  - TYPE 2 DIABETES MELLITUS [None]
  - VAGINAL HAEMORRHAGE [None]
